FAERS Safety Report 4959644-0 (Version None)
Quarter: 2006Q1

REPORT INFORMATION
  Report Type: 
  Country: None (occurrence: None)
  Receive Date: 20060331
  Receipt Date: 20060322
  Transmission Date: 20060701
  Serious: Yes (Hospitalization)
  Sender: FDA-Public Use
  Company Number: US-ROCHE-441503

PATIENT
  Age: 46 Year
  Sex: Female

DRUGS (2)
  1. TAMIFLU [Suspect]
     Indication: PROPHYLAXIS
     Route: 048
     Dates: start: 20060307, end: 20060309
  2. NEURONTIN [Concomitant]

REACTIONS (1)
  - ATRIAL FIBRILLATION [None]
